FAERS Safety Report 24795726 (Version 2)
Quarter: 2025Q4

REPORT INFORMATION
  Report Type: Spontaneous
  Country: EU (occurrence: EU)
  Receive Date: 20250101
  Receipt Date: 20251018
  Transmission Date: 20260118
  Serious: Yes (Hospitalization)
  Sender: AUROBINDO
  Company Number: EU-SYNOPTIS-027-L-0004

PATIENT
  Age: 26 Year
  Sex: Female

DRUGS (27)
  1. ALPRAZOLAM [Suspect]
     Active Substance: ALPRAZOLAM
     Indication: Product used for unknown indication
     Dosage: UNK
     Route: 065
  2. IBUPROFEN [Suspect]
     Active Substance: IBUPROFEN
     Indication: Persistent genital arousal disorder
     Dosage: 400 MILLIGRAM
     Route: 065
  3. CIPROFLOXACIN [Suspect]
     Active Substance: CIPROFLOXACIN
     Indication: Product used for unknown indication
     Dosage: UNK
     Route: 065
  4. CLOTRIMAZOLE [Suspect]
     Active Substance: CLOTRIMAZOLE
     Indication: Product used for unknown indication
     Dosage: UNK
     Route: 065
  5. CETIRIZINE HYDROCHLORIDE [Suspect]
     Active Substance: CETIRIZINE HYDROCHLORIDE
     Indication: Persistent genital arousal disorder
     Dosage: 10 MILLIGRAM
     Route: 065
  6. FLUCONAZOLE [Suspect]
     Active Substance: FLUCONAZOLE
     Indication: Persistent genital arousal disorder
     Dosage: 200 MILLIGRAM
     Route: 065
  7. FLUCONAZOLE [Suspect]
     Active Substance: FLUCONAZOLE
     Dosage: 50 MILLIGRAM
     Route: 065
  8. FLUCONAZOLE [Suspect]
     Active Substance: FLUCONAZOLE
     Dosage: 100 MILLIGRAM
     Route: 065
  9. FLUCONAZOLE [Suspect]
     Active Substance: FLUCONAZOLE
     Dosage: 150 MILLIGRAM
     Route: 065
  10. FURAZIDINE [Suspect]
     Active Substance: FURAZIDINE
     Indication: Persistent genital arousal disorder
     Dosage: 50 MILLIGRAM
     Route: 065
  11. FURAZIDINE [Suspect]
     Active Substance: FURAZIDINE
     Dosage: 100 MILLIGRAM
     Route: 065
  12. FURAZIDINE [Suspect]
     Active Substance: FURAZIDINE
     Indication: Persistent genital arousal disorder
     Dosage: 100 MILLIGRAM
     Route: 065
  13. FURAZIDINE [Suspect]
     Active Substance: FURAZIDINE
     Dosage: 50 MILLIGRAM
     Route: 065
  14. HYDROXYZINE [Suspect]
     Active Substance: HYDROXYZINE HYDROCHLORIDE
     Indication: Persistent genital arousal disorder
     Dosage: 10 MILLIGRAM
     Route: 065
  15. HYDROXYZINE [Suspect]
     Active Substance: HYDROXYZINE HYDROCHLORIDE
     Dosage: 25 MILLIGRAM
     Route: 065
  16. IBUPROFEN [Suspect]
     Active Substance: IBUPROFEN
     Indication: Persistent genital arousal disorder
     Dosage: 200 MILLIGRAM
     Route: 065
  17. ACETAMINOPHEN\CODEINE PHOSPHATE [Suspect]
     Active Substance: ACETAMINOPHEN\CODEINE PHOSPHATE
     Indication: Product used for unknown indication
     Dosage: UNK
     Route: 065
  18. ACETAMINOPHEN [Suspect]
     Active Substance: ACETAMINOPHEN
     Indication: Persistent genital arousal disorder
     Dosage: 500 MILLIGRAM (PARACETAMOL SYNOPTIS)
     Route: 065
  19. ACETAMINOPHEN [Suspect]
     Active Substance: ACETAMINOPHEN
     Indication: Persistent genital arousal disorder
     Dosage: 500 MILLIGRAM
     Route: 065
  20. NATAMYCIN [Suspect]
     Active Substance: NATAMYCIN
     Indication: Product used for unknown indication
     Dosage: UNK
     Route: 065
  21. TIANEPTINE [Suspect]
     Active Substance: TIANEPTINE
     Indication: Product used for unknown indication
     Dosage: UNK
     Route: 065
  22. SERTRALINE [Concomitant]
     Active Substance: SERTRALINE HYDROCHLORIDE
     Indication: Depression
     Dosage: 50 MILLIGRAM
     Route: 065
  23. SERTRALINE [Concomitant]
     Active Substance: SERTRALINE HYDROCHLORIDE
     Dosage: 100 MILLIGRAM
     Route: 065
  24. DULOXETINE [Concomitant]
     Active Substance: DULOXETINE
     Indication: Product used for unknown indication
     Dosage: 60 MILLIGRAM
     Route: 065
  25. VALPROIC ACID [Concomitant]
     Active Substance: VALPROIC ACID
     Indication: Product used for unknown indication
     Dosage: UNK
     Route: 042
  26. CRANBERRY [Concomitant]
     Active Substance: CRANBERRY
     Indication: Product used for unknown indication
     Dosage: 400 MILLIGRAM
     Route: 042
  27. GENTAMICIN [Concomitant]
     Active Substance: GENTAMICIN
     Indication: Product used for unknown indication
     Dosage: UNK
     Route: 065

REACTIONS (1)
  - Persistent genital arousal disorder [Unknown]
